FAERS Safety Report 7327992-5 (Version None)
Quarter: 2011Q1

REPORT INFORMATION
  Report Type: 
  Country: None (occurrence: None)
  Receive Date: 20110223
  Receipt Date: 20110120
  Transmission Date: 20110831
  Serious: Yes (Death)
  Sender: FDA-Public Use
  Company Number: AE11-013

PATIENT
  Sex: Male

DRUGS (8)
  1. MEPROBAMATE [Suspect]
  2. LORCET-HD [Suspect]
  3. CODEINE [Suspect]
  4. CARISOPRODOL [Suspect]
  5. METHAMPHETAMINE [Suspect]
  6. MARIJUANA [Suspect]
  7. ACETYLCYSTEINE [Suspect]
  8. SKELETAL MUSCLE RELAXANT (NOS) [Suspect]

REACTIONS (6)
  - HYPOTENSION [None]
  - BRADYCARDIA [None]
  - RASH [None]
  - CARDIAC ARREST [None]
  - ANGIOEDEMA [None]
  - RESPIRATORY ARREST [None]
